FAERS Safety Report 17860797 (Version 1)
Quarter: 2020Q2

REPORT INFORMATION
  Report Type: Spontaneous
  Country: HR (occurrence: HR)
  Receive Date: 20200604
  Receipt Date: 20200604
  Transmission Date: 20200714
  Serious: Yes (Other)
  Sender: FDA-Public Use
  Company Number: HR-TEVA-2020-HR-1243408

PATIENT
  Sex: Male

DRUGS (3)
  1. PRAZINE (PROMAZINE HYDROCHLORIDE) [Suspect]
     Active Substance: PROMAZINE HYDROCHLORIDE
     Dosage: 45 DOSAGE FORMS
     Route: 048
     Dates: start: 20191227, end: 20191227
  2. NORMABEL [Suspect]
     Active Substance: DIAZEPAM
     Dosage: 150 MG
     Route: 048
     Dates: start: 20191227, end: 20191227
  3. RISSET [Suspect]
     Active Substance: RISPERIDONE
     Dosage: 60 DOSAGE FORMS
     Route: 048
     Dates: start: 20191227, end: 20191227

REACTIONS (5)
  - Somnolence [Unknown]
  - Tachycardia [Unknown]
  - Intentional overdose [Unknown]
  - Suicide attempt [Unknown]
  - Hypotension [Unknown]

NARRATIVE: CASE EVENT DATE: 20191227
